FAERS Safety Report 8616924-5 (Version None)
Quarter: 2012Q3

REPORT INFORMATION
  Report Type: 
  Country: None (occurrence: None)
  Receive Date: 20120823
  Receipt Date: 20120813
  Transmission Date: 20120928
  Serious: Yes (Hospitalization, Other)
  Sender: FDA-Public Use
  Company Number: US-009507513-2008-183939-NL

PATIENT

DRUGS (2)
  1. ADVIL [Concomitant]
     Indication: PRODUCT USED FOR UNKNOWN INDICATION
  2. NUVARING [Suspect]
     Indication: CONTRACEPTION
     Dosage: DOSE TEXT: 3 WEEKS IN; 1 WEEK OUT, CONTINUING: NO
     Dates: start: 20060801, end: 20070101

REACTIONS (4)
  - PULMONARY EMBOLISM [None]
  - CANDIDIASIS [None]
  - WEIGHT INCREASED [None]
  - DEEP VEIN THROMBOSIS [None]
